FAERS Safety Report 7739952-0 (Version None)
Quarter: 2011Q3

REPORT INFORMATION
  Report Type: 
  Country: None (occurrence: None)
  Receive Date: 20110906
  Receipt Date: 20110830
  Transmission Date: 20111222
  Serious: Yes (Hospitalization)
  Sender: FDA-Public Use
  Company Number: MTX-11-12

PATIENT
  Age: 76 Year
  Sex: Female

DRUGS (2)
  1. METHOTREXATE [Suspect]
     Dosage: 7.5-10MG/WKLY
  2. ZOLEDRONIC ACID [Concomitant]

REACTIONS (4)
  - STRESS FRACTURE [None]
  - FEMUR FRACTURE [None]
  - ULNA FRACTURE [None]
  - PAIN IN EXTREMITY [None]
